FAERS Safety Report 22700376 (Version 9)
Quarter: 2024Q4

REPORT INFORMATION
  Report Type: Report from Study
  Country: US (occurrence: US)
  Receive Date: 20230713
  Receipt Date: 20241023
  Transmission Date: 20250114
  Serious: No
  Sender: DECIPHERA PHARMACEUTICALS
  Company Number: US-DECIPHERA PHARMACEUTICALS LLC-2023US000639

PATIENT
  Age: 77 Year
  Sex: Female
  Weight: 52.154 kg

DRUGS (5)
  1. QINLOCK [Suspect]
     Active Substance: RIPRETINIB
     Indication: Gastrointestinal stromal tumour
     Dosage: 100 MILLIGRAM, QD
     Route: 048
  2. QINLOCK [Suspect]
     Active Substance: RIPRETINIB
     Dosage: 150 MILLIGRAM, QD
     Route: 048
  3. QINLOCK [Suspect]
     Active Substance: RIPRETINIB
     Dosage: 100 MILLIGRAM, QD
     Route: 048
  4. QINLOCK [Suspect]
     Active Substance: RIPRETINIB
     Dosage: 150 MILLIGRAM, QD
     Route: 048
  5. QINLOCK [Suspect]
     Active Substance: RIPRETINIB
     Dosage: 100 MILLIGRAM, QD
     Route: 048

REACTIONS (6)
  - Memory impairment [Not Recovered/Not Resolved]
  - Neoplasm progression [Unknown]
  - Decreased appetite [Unknown]
  - Back pain [Unknown]
  - Weight decreased [Unknown]
  - Product dose omission issue [Unknown]
